FAERS Safety Report 4942689-4 (Version None)
Quarter: 2006Q1

REPORT INFORMATION
  Report Type: 
  Country: None (occurrence: None)
  Receive Date: 20060309
  Receipt Date: 20060227
  Transmission Date: 20060701
  Serious: Yes (Other)
  Sender: FDA-Public Use
  Company Number: GXKR2006GB01240

PATIENT
  Age: 35 Year
  Sex: Female
  Weight: 55 kg

DRUGS (5)
  1. AMOXICILLIN [Suspect]
     Dosage: 500 MG, ORAL
     Route: 048
     Dates: start: 20060215, end: 20060216
  2. GAVISCON /OLD FORM/ (ALGINIC ACID, ALUMINIUM HYDROXIDE GEL, DRIED, MAG [Concomitant]
  3. ALVERINE (ALVERINE) [Concomitant]
  4. CITALOPRAM (CITALOPRAM) [Concomitant]
  5. CO-AMILOZIDE (AMILORIDE HYDROCHLORIDE, HYDROCHLOROTHIAZIDE) [Concomitant]

REACTIONS (3)
  - HYPERHIDROSIS [None]
  - PALLOR [None]
  - PALPITATIONS [None]
